FAERS Safety Report 4892420-6 (Version None)
Quarter: 2006Q1

REPORT INFORMATION
  Report Type: 
  Country: None (occurrence: None)
  Receive Date: 20060125
  Receipt Date: 20060125
  Transmission Date: 20060701
  Serious: Yes (Hospitalization)
  Sender: FDA-Public Use
  Company Number: None

PATIENT
  Age: 40 Year
  Sex: Female

DRUGS (8)
  1. METHOTREXATE [Suspect]
     Indication: LYMPHOMA
     Dosage: 1940 MG  CONT INFUSION
     Dates: start: 20051028, end: 20051029
  2. OXYCODONE [Concomitant]
  3. DECADRON SRC [Concomitant]
  4. ALLOPURINOL [Concomitant]
  5. CIPRO [Concomitant]
  6. FLUCONAZOLE [Concomitant]
  7. ACYCLOVIR [Concomitant]
  8. ATIVAN [Concomitant]

REACTIONS (3)
  - HAEMODIALYSIS [None]
  - INFUSION RELATED REACTION [None]
  - RENAL FAILURE ACUTE [None]
